FAERS Safety Report 6272236-9 (Version None)
Quarter: 2009Q3

REPORT INFORMATION
  Report Type: 
  Country: None (occurrence: None)
  Receive Date: 20090717
  Receipt Date: 20090707
  Transmission Date: 20100115
  Serious: Yes (Death, Hospitalization)
  Sender: FDA-Public Use
  Company Number: FR-BAXTER-2009BH011398

PATIENT
  Age: 14 Year
  Sex: Female

DRUGS (8)
  1. HOLOXAN BAXTER [Suspect]
     Indication: TERATOMA
     Route: 042
     Dates: start: 20090313, end: 20090314
  2. CISPLATIN [Suspect]
     Indication: TERATOMA
     Route: 042
     Dates: start: 20090313, end: 20090315
  3. ETOPOSIDE [Suspect]
     Indication: TERATOMA
     Route: 042
     Dates: start: 20090313, end: 20090315
  4. ETOPOSIDE [Suspect]
     Route: 042
     Dates: start: 20090313, end: 20090315
  5. MANNITOL [Concomitant]
     Indication: DRUG USE FOR UNKNOWN INDICATION
     Route: 065
     Dates: start: 20090313
  6. ONDANSETRON HCL [Concomitant]
     Indication: DRUG USE FOR UNKNOWN INDICATION
     Route: 065
     Dates: start: 20090313, end: 20090315
  7. PLITICAN [Concomitant]
     Indication: DRUG USE FOR UNKNOWN INDICATION
     Route: 065
     Dates: start: 20090313, end: 20090315
  8. MESNA [Concomitant]
     Indication: DRUG USE FOR UNKNOWN INDICATION
     Route: 065
     Dates: start: 20090313

REACTIONS (3)
  - ENCEPHALOPATHY [None]
  - HEPATITIS FULMINANT [None]
  - MULTI-ORGAN FAILURE [None]
